FAERS Safety Report 6295817-5 (Version None)
Quarter: 2009Q3

REPORT INFORMATION
  Report Type: 
  Country: None (occurrence: None)
  Receive Date: 20090803
  Receipt Date: 20090803
  Transmission Date: 20100115
  Serious: Yes (Other)
  Sender: FDA-Public Use
  Company Number: None

PATIENT
  Age: 50 Year
  Sex: Female
  Weight: 91.173 kg

DRUGS (2)
  1. SAVELLA [Suspect]
     Indication: FIBROMYALGIA
     Dosage: 12.5 MG BID X 5 DAYS PO
     Route: 048
     Dates: start: 20090718, end: 20090728
  2. SAVELLA [Suspect]
     Dosage: 25 MG BID PO
     Route: 048

REACTIONS (1)
  - ERYTHEMA MULTIFORME [None]
